FAERS Safety Report 6131404-7 (Version None)
Quarter: 2009Q1

REPORT INFORMATION
  Report Type: 
  Country: None (occurrence: None)
  Receive Date: 20090325
  Receipt Date: 20080521
  Transmission Date: 20090719
  Serious: Yes (Disabling)
  Sender: FDA-Public Use
  Company Number: US-BRISTOL-MYERS SQUIBB COMPANY-14194799

PATIENT
  Age: 80 Year
  Sex: Male

DRUGS (2)
  1. ERBITUX [Suspect]
     Indication: SQUAMOUS CELL CARCINOMA
     Dosage: LOADING DOSE 400 MG/M2; TOTAL DOSE 700MG. ONE DOSE ONLY.
     Route: 042
     Dates: start: 20080513
  2. BENADRYL [Concomitant]
     Indication: PREMEDICATION
     Route: 042

REACTIONS (2)
  - AGITATION [None]
  - CONFUSIONAL STATE [None]
